FAERS Safety Report 24401897 (Version 1)
Quarter: 2024Q4

REPORT INFORMATION
  Report Type: Spontaneous
  Country: US (occurrence: None)
  Receive Date: 20241007
  Receipt Date: 20241007
  Transmission Date: 20250115
  Serious: Yes (Other)
  Sender: UNICHEM
  Company Number: US-Unichem Pharmaceuticals (USA) Inc-UCM202409-001225

PATIENT
  Age: 62 Year
  Sex: Male

DRUGS (1)
  1. METFORMIN HYDROCHLORIDE [Suspect]
     Active Substance: METFORMIN HYDROCHLORIDE
     Indication: Diabetes mellitus
     Dosage: UNKNOWN

REACTIONS (5)
  - Acute kidney injury [Unknown]
  - Respiratory failure [Unknown]
  - Distributive shock [Unknown]
  - Lactic acidosis [Unknown]
  - Toxicity to various agents [Unknown]
